FAERS Safety Report 10182433 (Version 1)
Quarter: 2014Q2

REPORT INFORMATION
  Report Type: Spontaneous
  Country: US (occurrence: None)
  Receive Date: 20140519
  Receipt Date: 20140519
  Transmission Date: 20141212
  Serious: No
  Sender: FDA-Public Use
  Company Number: None

PATIENT
  Age: 75 Year
  Sex: Female
  Weight: 77.11 kg

DRUGS (1)
  1. ZOLPIDEM [Suspect]
     Indication: SLEEP DISORDER
     Dosage: 1 AS NEEDED AT BEDTIME TAKEN BY MOUTH
     Route: 048
     Dates: start: 20140501, end: 20140504

REACTIONS (3)
  - Product quality issue [None]
  - Drug ineffective [None]
  - Product quality issue [None]
